FAERS Safety Report 5868836-8 (Version None)
Quarter: 2008Q3

REPORT INFORMATION
  Report Type: 
  Country: None (occurrence: None)
  Receive Date: 20080902
  Receipt Date: 20080902
  Transmission Date: 20090109
  Serious: Yes (Other)
  Sender: FDA-Public Use
  Company Number: None

PATIENT
  Age: 41 Year
  Sex: Female
  Weight: 56.246 kg

DRUGS (1)
  1. CHANTIX [Suspect]
     Indication: SMOKING CESSATION THERAPY
     Dosage: .5 MG 1 X DAY PO
     Route: 048
     Dates: start: 20080818, end: 20080824

REACTIONS (4)
  - BACK PAIN [None]
  - BLEPHAROSPASM [None]
  - PRURITUS [None]
  - URTICARIA [None]
